FAERS Safety Report 7551476-2 (Version None)
Quarter: 2011Q2

REPORT INFORMATION
  Report Type: 
  Country: None (occurrence: None)
  Receive Date: 20110616
  Receipt Date: 20110614
  Transmission Date: 20111010
  Serious: Yes (Death, Other)
  Sender: FDA-Public Use
  Company Number: PHHY2011US21252

PATIENT
  Sex: Female

DRUGS (2)
  1. GILENYA [Suspect]
     Indication: RELAPSING-REMITTING MULTIPLE SCLEROSIS
     Dosage: 0.5 MG, QD
     Route: 048
     Dates: start: 20110124
  2. LOSARTAN POTASSIUM [Concomitant]
     Dosage: 50 MG, UNK

REACTIONS (9)
  - COUGH [None]
  - OROPHARYNGEAL PAIN [None]
  - FURUNCLE [None]
  - BLOOD PRESSURE INCREASED [None]
  - HERPES ZOSTER [None]
  - HEADACHE [None]
  - CARDIAC MURMUR [None]
  - PYREXIA [None]
  - DEATH [None]
